FAERS Safety Report 5097659-5 (Version None)
Quarter: 2006Q3

REPORT INFORMATION
  Report Type: 
  Country: None (occurrence: None)
  Receive Date: 20060831
  Receipt Date: 20060817
  Transmission Date: 20061208
  Serious: Yes (Hospitalization)
  Sender: FDA-Public Use
  Company Number: 060821-0000771

PATIENT
  Age: 51 Year
  Sex: Female
  Weight: 98 kg

DRUGS (8)
  1. PANHEMATIN [Suspect]
     Indication: PORPHYRIA
     Dosage: 313 MG; 1X; IV
     Route: 042
     Dates: start: 20060816, end: 20060816
  2. DEXTROSE [Concomitant]
  3. TOPROL-XL [Concomitant]
  4. EFFEXOR [Concomitant]
  5. CLARITIN [Concomitant]
  6. DIAZIDE [Concomitant]
  7. TRICOR [Concomitant]
  8. NEXIUM [Concomitant]

REACTIONS (3)
  - DEEP VEIN THROMBOSIS [None]
  - EXTRAVASATION [None]
  - INJECTION SITE PHLEBITIS [None]
